FAERS Safety Report 8491878-3 (Version None)
Quarter: 2012Q3

REPORT INFORMATION
  Report Type: 
  Country: None (occurrence: None)
  Receive Date: 20120706
  Receipt Date: 20110926
  Transmission Date: 20120928
  Serious: No
  Sender: FDA-Public Use
  Company Number: US-GLAXOSMITHKLINE-A0946027A

PATIENT
  Age: 66 Year
  Sex: Female

DRUGS (5)
  1. AMLODIPINE [Concomitant]
  2. LOPRESSOR [Concomitant]
  3. FLONASE [Concomitant]
  4. METOPROLOL [Concomitant]
  5. FLOVENT [Suspect]
     Indication: ASTHMA
     Dosage: 2SPR TWICE PER DAY
     Route: 055
     Dates: start: 20110601

REACTIONS (2)
  - PRODUCT QUALITY ISSUE [None]
  - DYSPNOEA [None]
